FAERS Safety Report 22074811 (Version 1)
Quarter: 2023Q1

REPORT INFORMATION
  Report Type: Spontaneous
  Country: US (occurrence: US)
  Receive Date: 20230308
  Receipt Date: 20230308
  Transmission Date: 20230418
  Serious: No
  Sender: FDA-Public Use
  Company Number: US-TEVA-2023-US-2858627

PATIENT
  Age: 63 Year
  Sex: Female

DRUGS (2)
  1. CLONAZEPAM [Suspect]
     Active Substance: CLONAZEPAM
     Indication: Product used for unknown indication
     Route: 065
     Dates: start: 1992
  2. TYLENOL [Concomitant]
     Active Substance: ACETAMINOPHEN
     Indication: Product used for unknown indication
     Dosage: REGULAR STRENGTH
     Route: 065

REACTIONS (6)
  - Rosacea [Unknown]
  - Erythema [Unknown]
  - Blister [Unknown]
  - Palpitations [Unknown]
  - Heart rate increased [Unknown]
  - Contraindicated product administered [Unknown]
